FAERS Safety Report 16777435 (Version 1)
Quarter: 2019Q3

REPORT INFORMATION
  Report Type: Spontaneous
  Country: US (occurrence: US)
  Receive Date: 20190905
  Receipt Date: 20190905
  Transmission Date: 20191005
  Serious: No
  Sender: FDA-Public Use
  Company Number: US-ASTRAZENECA-2019SF13896

PATIENT
  Age: 24022 Day
  Sex: Male
  Weight: 81.6 kg

DRUGS (1)
  1. BYDUREON BCISE [Suspect]
     Active Substance: EXENATIDE
     Indication: DIABETES MELLITUS
     Route: 058
     Dates: start: 20190723

REACTIONS (9)
  - Injection site pain [Not Recovered/Not Resolved]
  - Drug ineffective [Unknown]
  - Device leakage [Unknown]
  - Injection site bruising [Not Recovered/Not Resolved]
  - Injury associated with device [Unknown]
  - Injection site erythema [Not Recovered/Not Resolved]
  - Product use issue [Recovered/Resolved]
  - Wrong technique in device usage process [Recovered/Resolved]
  - Incorrect dose administered by product [Recovered/Resolved]

NARRATIVE: CASE EVENT DATE: 20190723
